FAERS Safety Report 15288308 (Version 3)
Quarter: 2018Q3

REPORT INFORMATION
  Report Type: Spontaneous
  Country: US (occurrence: US)
  Receive Date: 20180817
  Receipt Date: 20180918
  Transmission Date: 20181010
  Serious: Yes (Hospitalization)
  Sender: FDA-Public Use
  Company Number: US-JNJFOC-20180731156

PATIENT
  Sex: Male
  Weight: 108.86 kg

DRUGS (1)
  1. INVOKANA [Suspect]
     Active Substance: CANAGLIFLOZIN
     Indication: PRODUCT USED FOR UNKNOWN INDICATION
     Route: 048
     Dates: start: 20150502, end: 20180531

REACTIONS (8)
  - Hospitalisation [Not Recovered/Not Resolved]
  - Blister [Not Recovered/Not Resolved]
  - Venous stenosis [Not Recovered/Not Resolved]
  - Ulcer [Not Recovered/Not Resolved]
  - Weight decreased [Not Recovered/Not Resolved]
  - Product label issue [Unknown]
  - Blood glucose increased [Unknown]
  - Infection [Unknown]

NARRATIVE: CASE EVENT DATE: 2018
